FAERS Safety Report 8780230 (Version 1)
Quarter: 2012Q4

REPORT INFORMATION
  Report Type: Spontaneous
  Country: US (occurrence: None)
  Receive Date: 20120904
  Receipt Date: 20120904
  Transmission Date: 20130627
  Serious: No
  Sender: FDA-Public Use
  Company Number: None

PATIENT
  Age: 53 Year
  Sex: Male
  Weight: 74.39 kg

DRUGS (1)
  1. PRILOSEC DELAYED-RELEASE CAPSULES [Suspect]
     Dosage: 1 pill

REACTIONS (1)
  - Libido decreased [None]
